FAERS Safety Report 7892585-8 (Version None)
Quarter: 2011Q4

REPORT INFORMATION
  Report Type: 
  Country: None (occurrence: None)
  Receive Date: 20111102
  Receipt Date: 20111020
  Transmission Date: 20120403
  Serious: Yes (Death, Other)
  Sender: FDA-Public Use
  Company Number: JP-2011-0581

PATIENT
  Age: 61 Year
  Sex: Male

DRUGS (3)
  1. CISPLATIN [Concomitant]
  2. NAVELBINE [Suspect]
     Indication: NON-SMALL CELL LUNG CANCER
     Dosage: 32 MG IV
     Route: 042
     Dates: start: 20081202, end: 20090113
  3. DECADRON [Suspect]
     Indication: VOMITING
     Dosage: 4 MG BID PO
     Route: 048
     Dates: start: 20081221, end: 20090119

REACTIONS (6)
  - SEPTIC SHOCK [None]
  - CARDIAC ARREST [None]
  - HAEMOGLOBIN DECREASED [None]
  - LEUKOPENIA [None]
  - VOMITING [None]
  - DYSPNOEA [None]
